FAERS Safety Report 25970431 (Version 2)
Quarter: 2025Q4

REPORT INFORMATION
  Report Type: Spontaneous
  Country: JP (occurrence: JP)
  Receive Date: 20251028
  Receipt Date: 20251209
  Transmission Date: 20260117
  Serious: Yes (Death, Other)
  Sender: GILEAD
  Company Number: JP-GILEAD-2025-0734125

PATIENT
  Age: 72 Year
  Sex: Female

DRUGS (1)
  1. TRODELVY [Suspect]
     Active Substance: SACITUZUMAB GOVITECAN-HZIY
     Indication: Triple negative breast cancer
     Dosage: 420 MG
     Route: 065
     Dates: start: 20250610, end: 20250818

REACTIONS (4)
  - Osteomyelitis [Unknown]
  - Malignant pleural effusion [Unknown]
  - Triple negative breast cancer [Fatal]
  - Pleural effusion [Unknown]

NARRATIVE: CASE EVENT DATE: 20250901
